FAERS Safety Report 20149422 (Version 4)
Quarter: 2022Q1

REPORT INFORMATION
  Report Type: Report from Study
  Country: IT (occurrence: IT)
  Receive Date: 20211205
  Receipt Date: 20220308
  Transmission Date: 20220424
  Serious: Yes (Hospitalization)
  Sender: FDA-Public Use
  Company Number: IT-NOVARTISPH-NVSC2021IT273141

PATIENT
  Age: 63 Year
  Sex: Male
  Weight: 72 kg

DRUGS (11)
  1. ELTROMBOPAG [Suspect]
     Active Substance: ELTROMBOPAG
     Indication: Thrombocytopenia
     Dosage: 150 MG, UNKNOWN
     Route: 048
     Dates: start: 20210426
  2. PANTOPRAZOLE [Concomitant]
     Active Substance: PANTOPRAZOLE
     Indication: Prophylaxis
     Dosage: 20 MG, UNKNOWN
     Route: 065
     Dates: start: 2013
  3. PLAVIX [Concomitant]
     Active Substance: CLOPIDOGREL BISULFATE
     Indication: Hypertension
     Dosage: 75 MG, UNKNOWN
     Route: 065
     Dates: start: 2013
  4. ATORVASTATIN [Concomitant]
     Active Substance: ATORVASTATIN
     Indication: Hypercholesterolaemia
     Dosage: 12 UNIT, UNKNOWN
     Route: 065
     Dates: start: 2013
  5. HUMALOG [Concomitant]
     Active Substance: INSULIN LISPRO
     Indication: Type 2 diabetes mellitus
     Dosage: 16 UNIT, UNKNOWN
     Route: 065
     Dates: start: 2013
  6. LANTUS [Concomitant]
     Active Substance: INSULIN GLARGINE
     Indication: Product used for unknown indication
     Dosage: 12 UNIT, UNKNOWN
     Route: 065
     Dates: start: 2013
  7. FEBUXOSTAT [Concomitant]
     Active Substance: FEBUXOSTAT
     Indication: Product used for unknown indication
     Dosage: 80 MG, UNKNOWN
     Route: 065
     Dates: start: 202108
  8. VALSARTAN [Concomitant]
     Active Substance: VALSARTAN
     Indication: Hypertension
     Dosage: 80 MG, UNKNOWN
     Route: 065
     Dates: start: 202108
  9. LASIX [Concomitant]
     Active Substance: FUROSEMIDE
     Indication: Product used for unknown indication
     Dosage: 25 MG, UNKNOWN
     Route: 065
     Dates: start: 202108
  10. CARVEDILOL [Concomitant]
     Active Substance: CARVEDILOL
     Indication: Prophylaxis
     Dosage: 6.15 MG, UNKNOWN
     Route: 065
     Dates: start: 2013
  11. NITRODERM [Concomitant]
     Active Substance: NITROGLYCERIN
     Indication: Prophylaxis
     Dosage: 10 MG, UNKNOWN
     Route: 065
     Dates: start: 2013

REACTIONS (2)
  - Constipation [Recovered/Resolved]
  - Testicular disorder [Recovered/Resolved with Sequelae]

NARRATIVE: CASE EVENT DATE: 20210726
